FAERS Safety Report 4674679-3 (Version None)
Quarter: 2005Q2

REPORT INFORMATION
  Report Type: 
  Country: None (occurrence: None)
  Receive Date: 20050526
  Receipt Date: 20050519
  Transmission Date: 20051028
  Serious: Yes (Hospitalization)
  Sender: FDA-Public Use
  Company Number: J200501724

PATIENT
  Age: 22 Year
  Sex: Male

DRUGS (2)
  1. SAWACILLIN [Suspect]
     Indication: UPPER RESPIRATORY TRACT INFECTION
     Dosage: 250MG SEE DOSAGE TEXT
     Route: 048
     Dates: start: 20050424, end: 20050425
  2. LOXOPROFEN SODIUM [Concomitant]
     Route: 048
     Dates: start: 20050424, end: 20050425

REACTIONS (4)
  - ALANINE AMINOTRANSFERASE INCREASED [None]
  - ASPARTATE AMINOTRANSFERASE INCREASED [None]
  - INFECTIOUS MONONUCLEOSIS [None]
  - LIVER DISORDER [None]
